FAERS Safety Report 9214627 (Version 1)
Quarter: 2013Q2

REPORT INFORMATION
  Report Type: Spontaneous
  Country: US (occurrence: US)
  Receive Date: 20130405
  Receipt Date: 20130405
  Transmission Date: 20140414
  Serious: Yes (Other)
  Sender: FDA-Public Use
  Company Number: US-ELI_LILLY_AND_COMPANY-US201207004299

PATIENT
  Age: 62 Year
  Sex: Female

DRUGS (2)
  1. FORTEO [Suspect]
     Dosage: UNK UNK, QD
     Dates: start: 201204
  2. FORTEO [Suspect]
     Dosage: UNK UNK, QD
     Dates: start: 201204

REACTIONS (4)
  - Scoliosis [Not Recovered/Not Resolved]
  - Lung disorder [Unknown]
  - Injection site rash [Unknown]
  - Injection site erythema [Unknown]
